FAERS Safety Report 4447963-6 (Version None)
Quarter: 2004Q3

REPORT INFORMATION
  Report Type: 
  Country: None (occurrence: None)
  Receive Date: 20040909
  Receipt Date: 20040909
  Transmission Date: 20050211
  Serious: Yes (Hospitalization)
  Sender: FDA-Public Use
  Company Number: None

PATIENT
  Age: 86 Year
  Sex: Male
  Weight: 72.5755 kg

DRUGS (6)
  1. RANITIDINE [Suspect]
     Indication: GASTROOESOPHAGEAL REFLUX DISEASE
     Dosage: 50MG IVPB DAILY
     Route: 042
     Dates: start: 20040530, end: 20040602
  2. MORPHINE [Suspect]
     Indication: PAIN
     Dosage: 1MG/HR PCA
     Dates: start: 20040531, end: 20040602
  3. ALBUTEROL [Concomitant]
  4. DILTIAZEM [Concomitant]
  5. IPRATROPIUM NEB [Concomitant]
  6. METOPROLOL [Concomitant]

REACTIONS (3)
  - CONFUSIONAL STATE [None]
  - HALLUCINATION [None]
  - MENTAL STATUS CHANGES [None]
